FAERS Safety Report 10497844 (Version 1)
Quarter: 2014Q4

REPORT INFORMATION
  Report Type: Spontaneous
  Country: US (occurrence: None)
  Receive Date: 20141003
  Receipt Date: 20141003
  Transmission Date: 20150528
  Serious: No
  Sender: FDA-Public Use
  Company Number: None

PATIENT
  Age: 57 Year
  Sex: Female

DRUGS (14)
  1. TRICOR [Concomitant]
     Active Substance: FENOFIBRATE
  2. ZETIA [Concomitant]
     Active Substance: EZETIMIBE
  3. HUMIRA [Suspect]
     Active Substance: ADALIMUMAB
     Indication: CROHN^S DISEASE
     Dosage: 40MG, EVERY 2 WEEKS, SUBCUTANEOUSLY
     Route: 058
     Dates: start: 20131219
  4. FLEXERIL [Concomitant]
     Active Substance: CYCLOBENZAPRINE HYDROCHLORIDE
  5. LISINOPRIL. [Concomitant]
     Active Substance: LISINOPRIL
  6. CALCIUM WITH VITAMIN D [Concomitant]
     Active Substance: CALCIUM\VITAMIN D
  7. EFFEXOR [Concomitant]
     Active Substance: VENLAFAXINE HYDROCHLORIDE
  8. ELAVIL [Concomitant]
     Active Substance: AMITRIPTYLINE HYDROCHLORIDE
  9. TOPROL XL [Concomitant]
     Active Substance: METOPROLOL SUCCINATE
  10. GLUCOSAMINE [Concomitant]
     Active Substance: GLUCOSAMINE
  11. CATAPRES [Concomitant]
     Active Substance: CLONIDINE HYDROCHLORIDE
  12. BABY ASPIRIN [Concomitant]
     Active Substance: ASPIRIN
  13. STOOL SOFTNERS [Concomitant]
  14. MULTI-VITAMINS (CALCIUM PANTOTHENATE, FOLIC ACID, VITAMINS NOS) [Concomitant]
     Active Substance: VITAMINS

REACTIONS (3)
  - Wrong technique in drug usage process [None]
  - Wound secretion [None]
  - Stomatitis [None]

NARRATIVE: CASE EVENT DATE: 20140929
